FAERS Safety Report 4592768-9 (Version None)
Quarter: 2005Q1

REPORT INFORMATION
  Report Type: 
  Country: None (occurrence: None)
  Receive Date: 20050228
  Receipt Date: 20050225
  Transmission Date: 20050727
  Serious: Yes (Disabling)
  Sender: FDA-Public Use
  Company Number: PHBS2005NO02892

PATIENT
  Age: 51 Year
  Sex: Female

DRUGS (4)
  1. TRILEPTAL [Suspect]
     Dosage: 300 MG, BID
     Route: 048
     Dates: start: 20040804, end: 20041101
  2. AERIUS [Suspect]
     Indication: HYPERSENSITIVITY
     Dosage: 5 MG/D
     Route: 048
     Dates: start: 20040805, end: 20050101
  3. VIOXX [Suspect]
     Indication: PAIN
     Dosage: 25 MG/D
     Route: 048
     Dates: start: 20040101, end: 20040101
  4. AZITROMAX [Suspect]
     Indication: INFECTION
     Dosage: 500 MG/D
     Route: 048
     Dates: start: 20040701, end: 20040701

REACTIONS (5)
  - DIZZINESS [None]
  - DYSKINESIA [None]
  - FEELING ABNORMAL [None]
  - NAUSEA [None]
  - REACTION TO MEDICAL AGENT PRESERVATIVES [None]
